FAERS Safety Report 16687952 (Version 1)
Quarter: 2019Q3

REPORT INFORMATION
  Report Type: Spontaneous
  Country: US (occurrence: US)
  Receive Date: 20190624
  Receipt Date: 20190624
  Transmission Date: 20191004
  Serious: Yes (Congenital Anomaly, Other)
  Sender: FDA-Public Use
  Company Number: None

PATIENT
  Sex: Male
  Weight: 3.23 kg

DRUGS (3)
  1. LEXAPRO [Suspect]
     Active Substance: ESCITALOPRAM OXALATE
  2. KEPPRA [Concomitant]
     Active Substance: LEVETIRACETAM
  3. DESYRYL [Concomitant]

REACTIONS (3)
  - Congenital hydronephrosis [None]
  - Maternal drugs affecting foetus [None]
  - Renal dysplasia [None]

NARRATIVE: CASE EVENT DATE: 20160711
